FAERS Safety Report 5235715-9 (Version None)
Quarter: 2007Q1

REPORT INFORMATION
  Report Type: 
  Country: None (occurrence: None)
  Receive Date: 20061208
  Receipt Date: 20060615
  Transmission Date: 20070707
  Serious: Yes (Other)
  Sender: FDA-Public Use
  Company Number: 2006UW12859

PATIENT
  Age: 45 Year
  Sex: Male

DRUGS (3)
  1. CRESTOR [Suspect]
     Dosage: 10 MG DAILY
  2. ALLOPURINOL [Suspect]
     Dosage: 200 MG DAILY
  3. PROTONIX [Suspect]
     Dosage: 40 MG DAILY

REACTIONS (1)
  - NEUROPATHY PERIPHERAL [None]
